FAERS Safety Report 18503235 (Version 4)
Quarter: 2021Q3

REPORT INFORMATION
  Report Type: Report from Study
  Country: US (occurrence: US)
  Receive Date: 20201113
  Receipt Date: 20210819
  Transmission Date: 20211014
  Serious: Yes (Hospitalization, Other)
  Sender: FDA-Public Use
  Company Number: NVSC2020US297086

PATIENT
  Age: 71 Year
  Sex: Female

DRUGS (4)
  1. TABRECTA [Suspect]
     Active Substance: CAPMATINIB
     Dosage: 400 MG, BID
     Route: 048
     Dates: start: 202010, end: 20210716
  2. TABRECTA [Suspect]
     Active Substance: CAPMATINIB
     Dosage: 400 MG, BID
     Route: 048
     Dates: start: 20201008
  3. TABRECTA [Suspect]
     Active Substance: CAPMATINIB
     Indication: NON-SMALL CELL LUNG CANCER
     Dosage: UNK (LOWER DOSE)
     Route: 065
  4. TABRECTA [Suspect]
     Active Substance: CAPMATINIB
     Dosage: UNK (FULL DOSE)
     Route: 065

REACTIONS (4)
  - Bronchiectasis [Unknown]
  - Abdominal discomfort [Unknown]
  - Oedema peripheral [Unknown]
  - Atrial fibrillation [Unknown]

NARRATIVE: CASE EVENT DATE: 20201201
